FAERS Safety Report 8949159 (Version 3)
Quarter: 2014Q1

REPORT INFORMATION
  Report Type: Spontaneous
  Country: US (occurrence: US)
  Receive Date: 20121206
  Receipt Date: 20140314
  Transmission Date: 20141002
  Serious: Yes (Hospitalization, Other)
  Sender: FDA-Public Use
  Company Number: US-BAYER-2012-127595

PATIENT
  Age: 15 Year
  Sex: Female
  Weight: 58.96 kg

DRUGS (5)
  1. YAZ [Suspect]
     Indication: CONTRACEPTION
     Dosage: UNK
     Dates: start: 200803, end: 200809
  2. QUASENSE [Concomitant]
     Dosage: AS DIRECTED
     Dates: start: 20070105
  3. ACIPHEX [Concomitant]
     Dosage: 20 MG, DAILY
     Route: 048
     Dates: start: 20070322
  4. PROMETHAZIN [Concomitant]
     Dosage: 25 MG, PRN
     Dates: start: 20070322
  5. PROZAC [Concomitant]
     Dosage: 20 MG, PRN
     Route: 048
     Dates: start: 20070322

REACTIONS (11)
  - Cholecystectomy [None]
  - Cholecystitis [None]
  - Cognitive disorder [None]
  - Pain [None]
  - Injury [None]
  - General physical health deterioration [None]
  - Anxiety [None]
  - Anhedonia [None]
  - Emotional distress [None]
  - Pain [None]
  - Mental disorder [None]
